FAERS Safety Report 8859693 (Version 1)
Quarter: 2012Q4

REPORT INFORMATION
  Report Type: Report from Study
  Country: US (occurrence: US)
  Receive Date: 20121025
  Receipt Date: 20121025
  Transmission Date: 20130627
  Serious: No
  Sender: FDA-Public Use
  Company Number: US-ABBOTT-12P-163-0908580-00

PATIENT
  Age: 32 None
  Sex: Female
  Weight: 97.61 kg

DRUGS (6)
  1. LUPRON DEPOT 3.75 MG [Suspect]
     Indication: ENDOMETRIOSIS
     Route: 050
  2. LEVOTHYROXINE [Concomitant]
     Indication: HYPOTHYROIDISM
     Dosage: Generic
  3. MAXIDE TRIAMTERENE [Concomitant]
     Indication: SWELLING
  4. MAXIDE TRIAMTERENE [Concomitant]
     Indication: HYPOTHYROIDISM
  5. VICODIN [Concomitant]
     Indication: ENDOMETRIOSIS
  6. ADVIL [Concomitant]
     Indication: HEADACHE

REACTIONS (9)
  - Headache [Not Recovered/Not Resolved]
  - Palpitations [Not Recovered/Not Resolved]
  - Anxiety [Not Recovered/Not Resolved]
  - Hot flush [Not Recovered/Not Resolved]
  - Night sweats [Not Recovered/Not Resolved]
  - Pyrexia [Not Recovered/Not Resolved]
  - Cyst rupture [Not Recovered/Not Resolved]
  - Abdominal pain lower [Recovering/Resolving]
  - Migraine [Not Recovered/Not Resolved]
